FAERS Safety Report 7457317-6 (Version None)
Quarter: 2011Q2

REPORT INFORMATION
  Report Type: 
  Country: None (occurrence: None)
  Receive Date: 20110504
  Receipt Date: 20100507
  Transmission Date: 20111010
  Serious: No
  Sender: FDA-Public Use
  Company Number: US-KINGPHARMUSA00001-K201000567

PATIENT
  Sex: Female

DRUGS (1)
  1. AVINZA [Suspect]
     Indication: PAIN
     Dosage: 60 MG, QD
     Dates: start: 20100501

REACTIONS (1)
  - SOMNOLENCE [None]
